FAERS Safety Report 5903300-9 (Version None)
Quarter: 2008Q3

REPORT INFORMATION
  Report Type: 
  Country: None (occurrence: None)
  Receive Date: 20080930
  Receipt Date: 20080926
  Transmission Date: 20090109
  Serious: Yes (Death, Hospitalization)
  Sender: FDA-Public Use
  Company Number: A0749918A

PATIENT
  Age: 79 Year
  Sex: Female
  Weight: 85 kg

DRUGS (4)
  1. SERETIDE [Suspect]
     Route: 055
     Dates: start: 20060901, end: 20080406
  2. SYNTHROID [Concomitant]
     Dates: start: 20030101, end: 20080406
  3. LEXOTAN [Concomitant]
     Dates: start: 20030101, end: 20080406
  4. ALENDRONATE SODIUM [Concomitant]
     Dates: start: 20030101, end: 20080406

REACTIONS (3)
  - CARDIOGENIC SHOCK [None]
  - RENAL FAILURE [None]
  - RESPIRATORY FAILURE [None]
